FAERS Safety Report 10767358 (Version 1)
Quarter: 2015Q1

REPORT INFORMATION
  Report Type: Spontaneous
  Country: US (occurrence: US)
  Receive Date: 20150205
  Receipt Date: 20150205
  Transmission Date: 20150721
  Serious: No
  Sender: FDA-Public Use
  Company Number: US-GALDERMA-US14002532

PATIENT
  Age: 15 Year
  Sex: Male

DRUGS (4)
  1. DORYX [Concomitant]
     Active Substance: DOXYCYCLINE HYCLATE
     Indication: ACNE
     Dosage: 100 MG
     Route: 048
     Dates: start: 201403
  2. CETAPHIL DERMACONTROL FOAM WASH [Concomitant]
     Active Substance: COSMETICS
     Indication: THERAPEUTIC SKIN CARE TOPICAL
     Route: 061
     Dates: start: 201403
  3. EPIDUO [Suspect]
     Active Substance: ADAPALENE\BENZOYL PEROXIDE
     Indication: ACNE
     Route: 061
     Dates: start: 201403, end: 201406
  4. CETAPHIL DERMACONTROL SPF 30 [Concomitant]
     Active Substance: AVOBENZONE\OCTISALATE\OCTOCRYLENE
     Indication: DRY SKIN PROPHYLAXIS
     Route: 061
     Dates: start: 201403

REACTIONS (2)
  - Inappropriate schedule of drug administration [Recovering/Resolving]
  - Drug ineffective [Recovering/Resolving]

NARRATIVE: CASE EVENT DATE: 201406
